FAERS Safety Report 6199148-3 (Version None)
Quarter: 2009Q2

REPORT INFORMATION
  Report Type: 
  Country: None (occurrence: None)
  Receive Date: 20090522
  Receipt Date: 20090129
  Transmission Date: 20091009
  Serious: No
  Sender: FDA-Public Use
  Company Number: A0765915A

PATIENT
  Age: 71 Year
  Sex: Male

DRUGS (14)
  1. VERAMYST [Suspect]
     Indication: NASAL CONGESTION
     Dosage: 2SPR PER DAY
     Route: 045
     Dates: start: 20080401
  2. GUAIFENESIN [Concomitant]
  3. LIPITOR [Concomitant]
  4. PROPOXYPHENE HCL CAP [Concomitant]
  5. FLOMAX [Concomitant]
  6. DETROL [Concomitant]
  7. CLIDINIUM [Concomitant]
  8. LEVSIN [Concomitant]
  9. HYDROCORTISONE [Concomitant]
  10. TOPROL-XL [Concomitant]
  11. VITAMIN B-12 [Concomitant]
  12. RELIV [Concomitant]
  13. METANX [Concomitant]
  14. BACITRACIN [Concomitant]

REACTIONS (1)
  - DRUG INEFFECTIVE [None]
